FAERS Safety Report 16855031 (Version 1)
Quarter: 2019Q3

REPORT INFORMATION
  Report Type: Spontaneous
  Country: JP (occurrence: JP)
  Receive Date: 20190926
  Receipt Date: 20190926
  Transmission Date: 20191005
  Serious: Yes (Other)
  Sender: FDA-Public Use
  Company Number: JP-GLAXOSMITHKLINE-JP2019JPN169311

PATIENT
  Age: 24 Year
  Sex: Female

DRUGS (9)
  1. DOBUTAMINE [Concomitant]
     Active Substance: DOBUTAMINE HYDROCHLORIDE
     Dosage: UNK
  2. MILRINONE [Concomitant]
     Active Substance: MILRINONE
     Dosage: UNK
  3. TADALAFIL. [Concomitant]
     Active Substance: TADALAFIL
     Dosage: UNK
  4. FLOLAN [Suspect]
     Active Substance: EPOPROSTENOL SODIUM
     Dosage: 3.9 NG/KG/MIN
     Route: 042
  5. FLOLAN [Suspect]
     Active Substance: EPOPROSTENOL SODIUM
     Indication: PULMONARY ARTERIAL HYPERTENSION
     Dosage: UNK
     Route: 042
  6. FLOLAN [Suspect]
     Active Substance: EPOPROSTENOL SODIUM
     Dosage: 5.3 NG/KG/MIN
     Route: 042
  7. TADALAFIL. [Concomitant]
     Active Substance: TADALAFIL
     Dosage: 10 MG, UNK
  8. MACITENTAN [Concomitant]
     Active Substance: MACITENTAN
     Dosage: UNK
  9. MACITENTAN [Concomitant]
     Active Substance: MACITENTAN
     Dosage: 10 MG, UNK

REACTIONS (5)
  - Exposure during pregnancy [Unknown]
  - Pulmonary arterial hypertension [Recovering/Resolving]
  - Condition aggravated [Recovering/Resolving]
  - Hypoxia [Recovering/Resolving]
  - Premature delivery [Unknown]
